FAERS Safety Report 19140035 (Version 4)
Quarter: 2021Q3

REPORT INFORMATION
  Report Type: Report from Study
  Country: US (occurrence: US)
  Receive Date: 20210415
  Receipt Date: 20210903
  Transmission Date: 20211014
  Serious: Yes (Other)
  Sender: FDA-Public Use
  Company Number: US-SHIRE-US202014843

PATIENT
  Sex: Female

DRUGS (3)
  1. HUMAN NORMAL IMMUNOGLOBULIN; LIQUID [Suspect]
     Active Substance: HUMAN IMMUNOGLOBULIN G
     Indication: PRIMARY IMMUNODEFICIENCY SYNDROME
  2. HUMAN NORMAL IMMUNOGLOBULIN; LIQUID [Suspect]
     Active Substance: HUMAN IMMUNOGLOBULIN G
     Indication: IMMUNODEFICIENCY COMMON VARIABLE
     Dosage: 25 GRAM, MONTHLY
     Route: 042
  3. SYNTHROID [Concomitant]
     Active Substance: LEVOTHYROXINE SODIUM
     Indication: PRODUCT USED FOR UNKNOWN INDICATION
     Dosage: UNK
     Route: 065

REACTIONS (28)
  - Lyme disease [Unknown]
  - Stress [Unknown]
  - Nausea [Unknown]
  - Asthenia [Unknown]
  - Renal function test abnormal [Unknown]
  - Rocky mountain spotted fever [Unknown]
  - Blood immunoglobulin M decreased [Unknown]
  - Rash papular [Unknown]
  - Dysphonia [Unknown]
  - Inability to afford medication [Unknown]
  - Urine abnormality [Unknown]
  - Intervertebral disc protrusion [Unknown]
  - Myalgia [Unknown]
  - Fatigue [Unknown]
  - Inappropriate schedule of product administration [Unknown]
  - Blood immunoglobulin A decreased [Unknown]
  - Lymphadenopathy [Unknown]
  - Hypersomnia [Unknown]
  - Arthropod bite [Unknown]
  - Scab [Unknown]
  - Neuralgia [Unknown]
  - Illness [Recovering/Resolving]
  - Back pain [Recovering/Resolving]
  - Diarrhoea [Unknown]
  - Gait inability [Unknown]
  - Neck pain [Recovering/Resolving]
  - Anxiety [Recovering/Resolving]
  - Pain in extremity [Unknown]
